FAERS Safety Report 7368479-3 (Version None)
Quarter: 2011Q1

REPORT INFORMATION
  Report Type: 
  Country: None (occurrence: None)
  Receive Date: 20110309
  Receipt Date: 20110222
  Transmission Date: 20110831
  Serious: Yes (Hospitalization)
  Sender: FDA-Public Use
  Company Number: DSA_45008_2011

PATIENT
  Age: 82 Year
  Sex: Female

DRUGS (2)
  1. OLMETEC (UNKNOWN) [Concomitant]
  2. DILTIAZEM HYDROCHLORIDE [Suspect]
     Indication: PRODUCT USED FOR UNKNOWN INDICATION
     Dosage: (TWICE DAILY ORAL)
     Route: 048

REACTIONS (1)
  - PNEUMONIA [None]
